FAERS Safety Report 4716369-4 (Version None)
Quarter: 2005Q3

REPORT INFORMATION
  Report Type: 
  Country: None (occurrence: None)
  Receive Date: 20050715
  Receipt Date: 20050715
  Transmission Date: 20060218
  Serious: Yes (Death, Life-Threatening, Hospitalization)
  Sender: FDA-Public Use
  Company Number: None

PATIENT
  Sex: Female
  Weight: 113.3993 kg

DRUGS (15)
  1. HUMIRA [Suspect]
     Indication: RHEUMATOID ARTHRITIS
     Dosage: 40 MG EVERY 2 WEEKS SQ
     Route: 058
     Dates: start: 20040629, end: 20050208
  2. HYDROXYCHLOROQUINE SULFATE [Concomitant]
  3. PRILOSEC [Concomitant]
  4. ASIRIN [Concomitant]
  5. COZAAR [Concomitant]
  6. AMIODARONE [Concomitant]
  7. COREG [Concomitant]
  8. PROZAC [Concomitant]
  9. FUROSEMIDE [Concomitant]
  10. TRAZADONE [Concomitant]
  11. ALBUTEROL [Concomitant]
  12. KLOR-CON [Concomitant]
  13. COUMADIN [Concomitant]
  14. BENZONATATE [Concomitant]
  15. VITAMIN D [Concomitant]

REACTIONS (2)
  - B-CELL LYMPHOMA [None]
  - HODGKIN'S DISEASE [None]
